FAERS Safety Report 8710903 (Version 2)
Quarter: 2013Q1

REPORT INFORMATION
  Report Type: Spontaneous
  Country: JP (occurrence: None)
  Receive Date: 20120720
  Receipt Date: 20130214
  Transmission Date: 20140127
  Serious: Yes (Hospitalization)
  Sender: FDA-Public Use
  Company Number: VAL_00796_2012

PATIENT
  Age: 70 Year
  Sex: Male

DRUGS (2)
  1. ROCALTROL [Suspect]
     Dosage: (2 UG QD ORAL)
     Route: 048
     Dates: start: 201109, end: 2011
  2. CALCIUM LACTATE (CALCIUM LACTATE) [Suspect]
     Dosage: (6 G QD ORAL)
     Route: 048
     Dates: start: 201109, end: 2011

REACTIONS (6)
  - HYPERCALCAEMIA [None]
  - DECREASED APPETITE [None]
  - VOMITING [None]
  - BLOOD UREA INCREASED [None]
  - BLOOD CREATININE INCREASED [None]
  - RENAL DISORDER [None]
